FAERS Safety Report 18244350 (Version 1)
Quarter: 2020Q3

REPORT INFORMATION
  Report Type: Report from Study
  Country: None (occurrence: US)
  Receive Date: 20200909
  Receipt Date: 20200909
  Transmission Date: 20201103
  Serious: Yes (Other)
  Sender: FDA-Public Use
  Company Number: US-ABBVIE-20K-163-3445284-00

PATIENT
  Sex: Female

DRUGS (2)
  1. HUMIRA [Suspect]
     Active Substance: ADALIMUMAB
     Indication: PSORIATIC ARTHROPATHY
     Dosage: CITRATE FREE
     Route: 058
  2. MELOXICAM. [Suspect]
     Active Substance: MELOXICAM
     Indication: PRODUCT USED FOR UNKNOWN INDICATION
     Route: 065

REACTIONS (23)
  - Ankylosing spondylitis [Unknown]
  - Vomiting [Unknown]
  - Pyrexia [Not Recovered/Not Resolved]
  - Gastric disorder [Unknown]
  - Malaise [Not Recovered/Not Resolved]
  - Sinus headache [Unknown]
  - Hypersensitivity [Not Recovered/Not Resolved]
  - Migraine [Unknown]
  - Increased tendency to bruise [Unknown]
  - Muscle twitching [Not Recovered/Not Resolved]
  - Cough [Unknown]
  - Nasal congestion [Unknown]
  - Headache [Not Recovered/Not Resolved]
  - Psoriasis [Unknown]
  - Feeling abnormal [Not Recovered/Not Resolved]
  - Lipoma [Unknown]
  - Heart rate irregular [Not Recovered/Not Resolved]
  - Productive cough [Unknown]
  - Dyspnoea [Unknown]
  - Abdominal discomfort [Unknown]
  - Constipation [Unknown]
  - Procedural pain [Unknown]
  - Fluid retention [Not Recovered/Not Resolved]

NARRATIVE: CASE EVENT DATE: 2019
